FAERS Safety Report 11941382 (Version 1)
Quarter: 2016Q1

REPORT INFORMATION
  Report Type: Spontaneous
  Country: US (occurrence: US)
  Receive Date: 20160122
  Receipt Date: 20160122
  Transmission Date: 20160526
  Serious: No
  Sender: FDA-Public Use
  Company Number: US-ASTRAZENECA-2016SE03816

PATIENT
  Sex: Female
  Weight: 68 kg

DRUGS (1)
  1. SYMBICORT [Suspect]
     Active Substance: BUDESONIDE\FORMOTEROL FUMARATE DIHYDRATE
     Indication: ASTHMA
     Dosage: 80/4.5 MCG, TWO TIMES A DAY
     Route: 055
     Dates: start: 201510, end: 20151222

REACTIONS (7)
  - Dry mouth [Not Recovered/Not Resolved]
  - Alopecia [Unknown]
  - Dizziness [Unknown]
  - Mouth swelling [Unknown]
  - Rash [Unknown]
  - Product quality issue [Unknown]
  - Muscle spasms [Unknown]
